FAERS Safety Report 5283044-X (Version None)
Quarter: 2007Q2

REPORT INFORMATION
  Report Type: 
  Country: None (occurrence: None)
  Receive Date: 20070402
  Receipt Date: 20070320
  Transmission Date: 20071010
  Serious: Yes (Other)
  Sender: FDA-Public Use
  Company Number: PHRM2007FR01114

PATIENT
  Sex: Male

DRUGS (2)
  1. FORADIL [Suspect]
     Indication: COUGH
  2. MIFLASONE [Suspect]
     Indication: COUGH

REACTIONS (3)
  - ABNORMAL BEHAVIOUR [None]
  - CHEST DISCOMFORT [None]
  - MUSCULOSKELETAL STIFFNESS [None]
